FAERS Safety Report 26053004 (Version 1)
Quarter: 2025Q4

REPORT INFORMATION
  Report Type: Spontaneous
  Country: PK (occurrence: PK)
  Receive Date: 20251117
  Receipt Date: 20251117
  Transmission Date: 20260118
  Serious: Yes (Other)
  Sender: STRIDES
  Company Number: None

PATIENT
  Age: 23 Year
  Sex: Female
  Weight: 48 kg

DRUGS (7)
  1. PREDNISONE [Suspect]
     Active Substance: PREDNISONE
     Indication: Systemic lupus erythematosus
     Dosage: ORAL PREDNISONE AND WAS TAPERED DOWN OVER THREE MONTHS AND THEN DISCONTINUED
     Route: 048
     Dates: start: 202407, end: 2024
  2. MYCOPHENOLATE MOFETIL [Suspect]
     Active Substance: MYCOPHENOLATE MOFETIL
     Indication: Central nervous system vasculitis
     Dosage: UNK
     Route: 065
  3. AZATHIOPRINE [Suspect]
     Active Substance: AZATHIOPRINE
     Indication: Central nervous system vasculitis
     Dosage: UNK
     Route: 065
  4. SOLU-MEDROL [Suspect]
     Active Substance: METHYLPREDNISOLONE SODIUM SUCCINATE
     Indication: Systemic lupus erythematosus
     Dosage: METHYLPREDNISOLONE ( BRAND NAME SOLUMEDROL 500 MG ONCE DAILY FOR THREE DAYS, IN INFUSION FORM( DILUT
     Route: 065
     Dates: start: 202407, end: 202407
  5. CYCLOPHOSPHAMIDE [Suspect]
     Active Substance: CYCLOPHOSPHAMIDE
     Indication: Systemic lupus erythematosus
     Dosage: UNK
     Route: 065
  6. CYCLOPHOSPHAMIDE [Suspect]
     Active Substance: CYCLOPHOSPHAMIDE
     Indication: Central nervous system vasculitis
     Dosage: UNK
     Route: 065
     Dates: start: 202407, end: 2024
  7. SODIUM CHLORIDE [Concomitant]
     Active Substance: SODIUM CHLORIDE
     Indication: Product used for unknown indication
     Dosage: METHYLPREDNISOLONE ( BRAND NAME SOLUMEDROL 500 MG ONCE DAILY FOR THREE DAYS, IN INFUSION FORM( DILUT
     Route: 065
     Dates: start: 202407, end: 202407

REACTIONS (3)
  - Osteonecrosis of jaw [Recovered/Resolved]
  - Off label use [Unknown]
  - Drug intolerance [Unknown]

NARRATIVE: CASE EVENT DATE: 20240101
